FAERS Safety Report 24993926 (Version 1)
Quarter: 2025Q1

REPORT INFORMATION
  Report Type: Other
  Country: GB (occurrence: GB)
  Receive Date: 20250221
  Receipt Date: 20250221
  Transmission Date: 20250409
  Serious: Yes (Disabling)
  Sender: MACLEODS
  Company Number: None

PATIENT

DRUGS (1)
  1. ESCITALOPRAM [Suspect]
     Active Substance: ESCITALOPRAM OXALATE
     Indication: Depression
     Dosage: 10 MG
     Route: 065
     Dates: start: 20220510, end: 20221220

REACTIONS (6)
  - Sexual dysfunction [Not Recovered/Not Resolved]
  - Brain fog [Unknown]
  - Visual impairment [Not Recovered/Not Resolved]
  - Sluggishness [Unknown]
  - Lethargy [Unknown]
  - Headache [Unknown]

NARRATIVE: CASE EVENT DATE: 20230125
